FAERS Safety Report 24735289 (Version 1)
Quarter: 2024Q4

REPORT INFORMATION
  Report Type: Spontaneous
  Country: JP (occurrence: JP)
  Receive Date: 20241215
  Receipt Date: 20241215
  Transmission Date: 20250115
  Serious: Yes (Other)
  Sender: GENMAB
  Company Number: JP-GENMAB-2024-04596

PATIENT
  Age: 84 Year
  Sex: Male

DRUGS (1)
  1. EPKINLY [Suspect]
     Active Substance: EPCORITAMAB-BYSP
     Indication: Diffuse large B-cell lymphoma
     Dosage: UNK, CYCLE 5 WAS ADMINISTERED
     Route: 065

REACTIONS (2)
  - Delirium [Unknown]
  - Cytokine release syndrome [Unknown]
